FAERS Safety Report 19359361 (Version 2)
Quarter: 2021Q2

REPORT INFORMATION
  Report Type: Report from Study
  Country: KR (occurrence: KR)
  Receive Date: 20210601
  Receipt Date: 20210605
  Transmission Date: 20210717
  Serious: Yes (Hospitalization, Other)
  Sender: FDA-Public Use
  Company Number: KR-AMGEN INC.-KORCT2021082208

PATIENT
  Age: 55 Year
  Sex: Female

DRUGS (1)
  1. FILGRASTIM [Suspect]
     Active Substance: FILGRASTIM
     Indication: PRODUCT USED FOR UNKNOWN INDICATION
     Dosage: 150 UNK, QD
     Route: 065
     Dates: start: 20191226, end: 20191228

REACTIONS (5)
  - Febrile neutropenia [Recovered/Resolved]
  - Pain [Recovered/Resolved]
  - Oral pain [Recovering/Resolving]
  - Anaemia [Recovering/Resolving]
  - Enteritis [Recovered/Resolved]

NARRATIVE: CASE EVENT DATE: 20191226
